FAERS Safety Report 16872263 (Version 1)
Quarter: 2019Q4

REPORT INFORMATION
  Report Type: Spontaneous
  Country: GT (occurrence: GT)
  Receive Date: 20191001
  Receipt Date: 20191001
  Transmission Date: 20200122
  Serious: Yes (Other)
  Sender: FDA-Public Use
  Company Number: GT-SA-2019SA268781

PATIENT
  Sex: Male

DRUGS (3)
  1. AMARYL [Suspect]
     Active Substance: GLIMEPIRIDE
     Indication: PRODUCT USED FOR UNKNOWN INDICATION
  2. TRAYENTA [Suspect]
     Active Substance: LINAGLIPTIN
     Indication: PRODUCT USED FOR UNKNOWN INDICATION
  3. APROVASC [Concomitant]
     Active Substance: AMLODIPINE BESYLATE\IRBESARTAN

REACTIONS (3)
  - Renal failure [Unknown]
  - Hypertension [Unknown]
  - Diabetes mellitus [Unknown]
